FAERS Safety Report 22346092 (Version 1)
Quarter: 2023Q2

REPORT INFORMATION
  Report Type: Spontaneous
  Country: HR (occurrence: HR)
  Receive Date: 20230519
  Receipt Date: 20230519
  Transmission Date: 20230722
  Serious: Yes (Life-Threatening)
  Sender: FDA-Public Use
  Company Number: HR-002147023-NVSC2023HR098383

PATIENT
  Age: 78 Year
  Sex: Female

DRUGS (2)
  1. LEVOFLOXACIN [Suspect]
     Active Substance: LEVOFLOXACIN
     Indication: Antibiotic therapy
     Dosage: 500 MG, Q12H (ROUTE: INTRAVENOUSLY AND PERIORAL) (SHE WAS ON THIS THERAPY FOR 20 DAYS)
     Route: 042
     Dates: start: 20230321, end: 202304
  2. RIFAMPIN [Concomitant]
     Active Substance: RIFAMPIN
     Indication: Product used for unknown indication
     Dosage: 300 MG, Q8H (SHE WAS ON THIS THERAPY FOR 20 DAYS)
     Route: 065
     Dates: start: 20230321

REACTIONS (5)
  - Abdominal discomfort [Recovering/Resolving]
  - Decreased appetite [Recovering/Resolving]
  - Nausea [Recovering/Resolving]
  - Asthenia [Recovering/Resolving]
  - Vomiting [Recovering/Resolving]

NARRATIVE: CASE EVENT DATE: 20230401
